FAERS Safety Report 5364255-1 (Version None)
Quarter: 2007Q2

REPORT INFORMATION
  Report Type: 
  Country: None (occurrence: None)
  Receive Date: 20070530
  Receipt Date: 20070115
  Transmission Date: 20071010
  Serious: No
  Sender: FDA-Public Use
  Company Number: 2007PV028489

PATIENT
  Age: 62 Year
  Sex: Female
  Weight: 64.8644 kg

DRUGS (5)
  1. BYETTA [Suspect]
     Indication: DIABETES MELLITUS NON-INSULIN-DEPENDENT
     Dosage: 10 MCG;BID;SC ; 5 MCG;BID;SC ; 10 MCG;BID;SC
     Route: 058
     Dates: start: 20060201, end: 20060901
  2. BYETTA [Suspect]
     Indication: DIABETES MELLITUS NON-INSULIN-DEPENDENT
     Dosage: 10 MCG;BID;SC ; 5 MCG;BID;SC ; 10 MCG;BID;SC
     Route: 058
     Dates: start: 20060901, end: 20061231
  3. BYETTA [Suspect]
     Indication: DIABETES MELLITUS NON-INSULIN-DEPENDENT
     Dosage: 10 MCG;BID;SC ; 5 MCG;BID;SC ; 10 MCG;BID;SC
     Route: 058
     Dates: start: 20070101
  4. METFORMIN HCL [Concomitant]
  5. GLUCOTROL [Concomitant]

REACTIONS (3)
  - HEADACHE [None]
  - INCORRECT DOSE ADMINISTERED [None]
  - VOMITING [None]
